FAERS Safety Report 6710020-X (Version None)
Quarter: 2010Q2

REPORT INFORMATION
  Report Type: 
  Country: None (occurrence: None)
  Receive Date: 20100503
  Receipt Date: 20100503
  Transmission Date: 20101027
  Serious: No
  Sender: FDA-Public Use
  Company Number: None

PATIENT
  Age: 11 Month
  Sex: Female
  Weight: 3 kg

DRUGS (2)
  1. CHILDREN'S MOTRIN [Suspect]
     Indication: TEETHING
     Dosage: 3/4 TSP 8 HRS/ AS NEEDED PO
     Route: 048
     Dates: start: 20100425, end: 20100430
  2. CHILDREN'S BENADRYL ALLERGY [Suspect]
     Indication: URTICARIA
     Dosage: 1 TSP 4 HRS/AS NEEDED PO
     Route: 048
     Dates: start: 20100427, end: 20100430

REACTIONS (2)
  - PRODUCT QUALITY ISSUE [None]
  - URTICARIA [None]
